FAERS Safety Report 5762106-4 (Version None)
Quarter: 2008Q2

REPORT INFORMATION
  Report Type: 
  Country: None (occurrence: None)
  Receive Date: 20080604
  Receipt Date: 20080519
  Transmission Date: 20081010
  Serious: Yes (Hospitalization)
  Sender: FDA-Public Use
  Company Number: DSA_31898_2008

PATIENT
  Sex: Female

DRUGS (1)
  1. LORAZEPAM [Suspect]
     Indication: DRUG USE FOR UNKNOWN INDICATION
     Dosage: 5 MG, BID NOT THE PRESCRIBED AMOUNT (OVERDOSE AMOUNT 31.5 MG), ORAL
     Route: 048
     Dates: start: 20080515, end: 20080518

REACTIONS (5)
  - ACCIDENTAL OVERDOSE [None]
  - ATAXIA [None]
  - DEPRESSED LEVEL OF CONSCIOUSNESS [None]
  - HAEMATOMA [None]
  - SOMNOLENCE [None]
